FAERS Safety Report 26211510 (Version 1)
Quarter: 2025Q4

REPORT INFORMATION
  Report Type: Spontaneous
  Country: None (occurrence: EG)
  Receive Date: 20251230
  Receipt Date: 20251230
  Transmission Date: 20260117
  Serious: Yes (Life-Threatening, Hospitalization, Other)
  Sender: HIKMA
  Company Number: EG-HIKMA PHARMACEUTICALS-EG-H14001-25-13816

PATIENT
  Age: 63 Year
  Sex: Male
  Weight: 65 kg

DRUGS (9)
  1. PACLITAXEL [Suspect]
     Active Substance: PACLITAXEL
     Indication: Lung cancer metastatic
     Dosage: 135 MILLIGRAM OVER 60 MINUTES (DAY 1,7,15)
  2. PACLITAXEL [Suspect]
     Active Substance: PACLITAXEL
     Dosage: 135 MILLIGRAM OVER 60 MINUTES (DAY 1,7,15), CYCLE 2
     Dates: start: 20250810
  3. PACLITAXEL [Suspect]
     Active Substance: PACLITAXEL
     Dosage: 135 MILLIGRAM OVER 60 MINUTES (DAY 1,7,15), CYCLE, THIRD DOSE DAY 1 CYCLE 2
     Dates: start: 20250807
  4. CISPLATIN [Suspect]
     Active Substance: CISPLATIN
     Indication: Lung cancer metastatic
     Dosage: 35 MILLIGRAM, OVER 60 MINUTES (DAY 1,2,3)
  5. CISPLATIN [Suspect]
     Active Substance: CISPLATIN
     Dosage: 35 MILLIGRAM, OVER 60 MINUTES (DAY 1,2,3), CYCLE 2
     Dates: start: 20250810
  6. DEXAMETHASONE [Concomitant]
     Active Substance: DEXAMETHASONE
     Indication: Premedication
     Dosage: INTRAVENOUS INFUSION OVER 30 MINUTES
  7. EMEX [DOMPERIDONE] [Concomitant]
     Indication: Premedication
     Dosage: INTRAVENOUS INFUSION OVER 30 MINUTES
  8. LASIPHAR [Concomitant]
     Indication: Supportive care
     Dosage: INTRAVENOUS INFUSION OVER 1 HOUR
  9. MAGNESIUM SULFATE;POTASSIUM CHLORIDE [Concomitant]
     Indication: Supportive care
     Dosage: INTRAVENOUS INFUSION OVER 2 HOURS

REACTIONS (2)
  - Brain oedema [Recovered/Resolved]
  - Confusional state [Recovered/Resolved]

NARRATIVE: CASE EVENT DATE: 20250913
